FAERS Safety Report 8998710 (Version 1)
Quarter: 2013Q1

REPORT INFORMATION
  Report Type: Spontaneous
  Country: JP (occurrence: JP)
  Receive Date: 20130103
  Receipt Date: 20130103
  Transmission Date: 20140127
  Serious: Yes (Hospitalization)
  Sender: FDA-Public Use
  Company Number: JP-JNJFOC-20130100285

PATIENT
  Age: 63 Year
  Sex: Female

DRUGS (2)
  1. SIMPONI [Suspect]
     Indication: RHEUMATOID ARTHRITIS
     Route: 058
     Dates: start: 20121214
  2. RHEUMATREX [Concomitant]
     Route: 048

REACTIONS (1)
  - Urinary tract infection [Recovering/Resolving]
